FAERS Safety Report 13514694 (Version 1)
Quarter: 2017Q2

REPORT INFORMATION
  Report Type: Spontaneous
  Country: US (occurrence: US)
  Receive Date: 20170504
  Receipt Date: 20170504
  Transmission Date: 20170830
  Serious: Yes (Death, Hospitalization)
  Sender: FDA-Public Use
  Company Number: US-ASTELLAS-2017US016768

PATIENT
  Age: 47 Year
  Sex: Male

DRUGS (1)
  1. TACROLIMUS. [Suspect]
     Active Substance: TACROLIMUS
     Indication: LIVER TRANSPLANT
     Dosage: UNK, UNKNOWN FREQ.
     Route: 065

REACTIONS (7)
  - Mucormycosis [Fatal]
  - Encephalopathy [Unknown]
  - Hypotension [Unknown]
  - Atrial fibrillation [Unknown]
  - Cerebral haemorrhage [Fatal]
  - Intracardiac thrombus [Fatal]
  - Fungal skin infection [Unknown]
